FAERS Safety Report 8472030-4 (Version None)
Quarter: 2012Q2

REPORT INFORMATION
  Report Type: 
  Country: None (occurrence: None)
  Receive Date: 20120627
  Receipt Date: 20120619
  Transmission Date: 20120825
  Serious: Yes (Death, Other)
  Sender: FDA-Public Use
  Company Number: IT-JNJFOC-20120611442

PATIENT
  Sex: Male

DRUGS (10)
  1. TOPIRAMATE [Suspect]
     Indication: CONVULSION
     Route: 048
  2. VALPROATE SODIUM [Concomitant]
     Indication: CONVULSION
     Route: 065
  3. PIRACETAM [Concomitant]
     Indication: MYOCLONUS
     Route: 065
  4. LAMOTRIGINE [Concomitant]
     Indication: MYOCLONUS
     Route: 065
  5. PIRACETAM [Concomitant]
     Indication: CONVULSION
     Route: 065
  6. PHENOBARBITAL TAB [Concomitant]
     Indication: CONVULSION
     Route: 065
  7. PHENOBARBITAL TAB [Concomitant]
     Indication: MYOCLONUS
     Route: 065
  8. LAMOTRIGINE [Concomitant]
     Indication: CONVULSION
     Route: 065
  9. TOPIRAMATE [Suspect]
     Indication: MYOCLONUS
     Route: 048
  10. VALPROATE SODIUM [Concomitant]
     Indication: MYOCLONUS
     Route: 065

REACTIONS (2)
  - PNEUMONIA [None]
  - DRUG INEFFECTIVE [None]
